FAERS Safety Report 23287299 (Version 1)
Quarter: 2023Q4

REPORT INFORMATION
  Report Type: Spontaneous
  Country: US (occurrence: US)
  Receive Date: 20231212
  Receipt Date: 20231212
  Transmission Date: 20240110
  Serious: Yes (Hospitalization, Other)
  Sender: FDA-Public Use
  Company Number: US-BRISTOL-MYERS SQUIBB COMPANY-2023-176066

PATIENT
  Age: 40 Year
  Sex: Male

DRUGS (5)
  1. NIVOLUMAB [Suspect]
     Active Substance: NIVOLUMAB
     Indication: Metastatic malignant melanoma
     Dates: start: 2020
  2. NIVOLUMAB [Suspect]
     Active Substance: NIVOLUMAB
     Dates: start: 2022
  3. NIVOLUMAB [Suspect]
     Active Substance: NIVOLUMAB
     Dosage: MAINTAINANCE
     Dates: start: 2022
  4. IPILIMUMAB [Suspect]
     Active Substance: IPILIMUMAB
     Indication: Metastatic malignant melanoma
     Dates: start: 2020
  5. IPILIMUMAB [Suspect]
     Active Substance: IPILIMUMAB
     Dates: start: 2022

REACTIONS (2)
  - Pericardial effusion [Unknown]
  - Pericarditis constrictive [Unknown]

NARRATIVE: CASE EVENT DATE: 20220101
